FAERS Safety Report 5777971-4 (Version None)
Quarter: 2008Q2

REPORT INFORMATION
  Report Type: 
  Country: None (occurrence: None)
  Receive Date: 20080617
  Receipt Date: 20080617
  Transmission Date: 20081010
  Serious: Yes (Death, Hospitalization)
  Sender: FDA-Public Use
  Company Number: None

PATIENT
  Sex: Male
  Weight: 92 kg

DRUGS (5)
  1. CYCLOPHOSPHAMIDE [Suspect]
     Dosage: 7020MG
  2. DACTINOMYCIN [Suspect]
     Dosage: 5 MG
  3. IRINOTECAN HCL [Suspect]
     Dosage: 1000 MG
  4. MESNA [Suspect]
     Dosage: 4230 MG
  5. VINCRISTINE SULFATE [Suspect]
     Dosage: 25 MG

REACTIONS (17)
  - BLOOD PH INCREASED [None]
  - CEREBRAL ISCHAEMIA [None]
  - CONVULSION [None]
  - ENCEPHALITIS [None]
  - FEELING ABNORMAL [None]
  - HAEMORRHAGIC CEREBRAL INFARCTION [None]
  - HYPERTENSIVE ENCEPHALOPATHY [None]
  - NAUSEA [None]
  - NYSTAGMUS [None]
  - ONCOLOGIC COMPLICATION [None]
  - PETECHIAE [None]
  - PLEURAL EFFUSION [None]
  - PURPURA [None]
  - REFUSAL OF TREATMENT BY RELATIVE [None]
  - RENAL TUBULAR NECROSIS [None]
  - RESPIRATORY RATE DECREASED [None]
  - VOMITING [None]
